FAERS Safety Report 4901579-3 (Version None)
Quarter: 2006Q1

REPORT INFORMATION
  Report Type: 
  Country: None (occurrence: None)
  Receive Date: 20060206
  Receipt Date: 20050422
  Transmission Date: 20060701
  Serious: No
  Sender: FDA-Public Use
  Company Number: US-BRISTOL-MYERS SQUIBB COMPANY-12944104

PATIENT
  Age: 62 Year
  Sex: Female

DRUGS (4)
  1. TAXOL [Suspect]
     Dates: start: 20050309, end: 20050309
  2. CARBOPLATIN [Concomitant]
     Dates: start: 20050309
  3. ALOXI [Concomitant]
     Indication: PROPHYLAXIS
     Route: 042
     Dates: start: 20050309
  4. TRIMETHOBENZAMIDE HCL [Concomitant]
     Dates: start: 20050309

REACTIONS (1)
  - LIVER FUNCTION TEST ABNORMAL [None]
